FAERS Safety Report 17054739 (Version 2)
Quarter: 2019Q4

REPORT INFORMATION
  Report Type: Spontaneous
  Country: FR (occurrence: FR)
  Receive Date: 20191120
  Receipt Date: 20191125
  Transmission Date: 20200122
  Serious: Yes (Hospitalization, Other)
  Sender: FDA-Public Use
  Company Number: FR-PFIZER INC-2019495505

PATIENT
  Age: 35 Year
  Sex: Female

DRUGS (12)
  1. VINCRISTINE SULFATE. [Suspect]
     Active Substance: VINCRISTINE SULFATE
     Indication: B PRECURSOR TYPE ACUTE LEUKAEMIA
     Dosage: 1.4 MG, CYCLIC (UP TO MAXIMUM 2MG D1, REPEATED EVERY 7-14 DAYS)
  2. DARBEPOETIN ALFA RECOMBINANT [Concomitant]
     Active Substance: DARBEPOETIN ALFA
     Dosage: 500 UG, 2X/WEEK
     Route: 058
  3. DOXORUBICIN HCL [Suspect]
     Active Substance: DOXORUBICIN HYDROCHLORIDE
     Indication: B PRECURSOR TYPE ACUTE LEUKAEMIA
     Dosage: 50 MG/M2, CYCLIC (D1 REPEATED EVERY 7-14 DAYS)
  4. FILGRASTIM [Concomitant]
     Active Substance: FILGRASTIM
     Indication: NEUTROPHIL COUNT DECREASED
     Dosage: 300 UG, DAILY
     Route: 042
  5. PREDNISONE. [Suspect]
     Active Substance: PREDNISONE
     Indication: B PRECURSOR TYPE ACUTE LEUKAEMIA
     Dosage: 40 MG/M2, CYCLIC (D1 TO D5, REPEATED EVERY 7-14 DAYS)
  6. VITAMIN B9 [Concomitant]
     Dosage: 50 MG, UNK (EVERY TWO DAYS)
     Route: 042
  7. IRON [Concomitant]
     Active Substance: IRON
     Dosage: 1000 MG, UNK (ONE DOSE)
     Route: 042
  8. ANTITHROMBIN III [Concomitant]
     Active Substance: ANTITHROMBIN III HUMAN
     Dosage: UNK UNK, AS NEEDED
  9. RITUXIMAB. [Suspect]
     Active Substance: RITUXIMAB
     Indication: B PRECURSOR TYPE ACUTE LEUKAEMIA
     Dosage: 375 MG/M2, CYCLIC (D1, REPEATED EVERY 7-14 DAYS)
  10. CYCLOPHOSPHAMIDE. [Suspect]
     Active Substance: CYCLOPHOSPHAMIDE
     Indication: B PRECURSOR TYPE ACUTE LEUKAEMIA
     Dosage: 750 MG/M2, CYCLIC (D1, (REPEATED EVERY 7-14 DAYS)
  11. HEPARIN [Concomitant]
     Active Substance: HEPARIN SODIUM
     Dosage: UNK UNFRACTIONED, AS NEEDED
     Route: 042
  12. ROMIPLOSTIM [Concomitant]
     Active Substance: ROMIPLOSTIM
     Indication: PLATELET COUNT DECREASED
     Dosage: 500 UG, 2X/WEEK
     Route: 058

REACTIONS (2)
  - Thrombocytopenia [Unknown]
  - Anaemia [Unknown]
